FAERS Safety Report 6383362-8 (Version None)
Quarter: 2009Q4

REPORT INFORMATION
  Report Type: 
  Country: None (occurrence: None)
  Receive Date: 20091001
  Receipt Date: 20090124
  Transmission Date: 20100525
  Serious: Yes (Other)
  Sender: FDA-Public Use
  Company Number: PHEH2009US10816

PATIENT
  Age: 11 Year
  Sex: Male

DRUGS (1)
  1. FOCALIN [Suspect]
     Dosage: 30 MG, QD

REACTIONS (1)
  - OBSESSIVE-COMPULSIVE DISORDER [None]
